FAERS Safety Report 10356322 (Version 1)
Quarter: 2014Q3

REPORT INFORMATION
  Report Type: Spontaneous
  Country: US (occurrence: US)
  Receive Date: 20140801
  Receipt Date: 20140801
  Transmission Date: 20150326
  Serious: No
  Sender: FDA-Public Use
  Company Number: US-ASTRAZENECA-2014SE53329

PATIENT
  Sex: Male

DRUGS (2)
  1. TOPROL XL [Suspect]
     Active Substance: METOPROLOL SUCCINATE
     Indication: ATRIAL FIBRILLATION
     Route: 048
  2. TOPROL XL [Suspect]
     Active Substance: METOPROLOL SUCCINATE
     Indication: ATRIAL FIBRILLATION
     Route: 048

REACTIONS (4)
  - Memory impairment [Not Recovered/Not Resolved]
  - Intentional product misuse [Unknown]
  - Atrial fibrillation [Recovered/Resolved]
  - Off label use [Not Recovered/Not Resolved]
